FAERS Safety Report 15850055 (Version 5)
Quarter: 2019Q3

REPORT INFORMATION
  Report Type: Spontaneous
  Country: US (occurrence: US)
  Receive Date: 20190121
  Receipt Date: 20190906
  Transmission Date: 20191004
  Serious: No
  Sender: FDA-Public Use
  Company Number: US-SA-2019SA013057

PATIENT
  Age: 50 Year
  Sex: Female

DRUGS (1)
  1. DUPILUMAB [Suspect]
     Active Substance: DUPILUMAB
     Dosage: 300 MG, QOW
     Route: 058
     Dates: start: 201811

REACTIONS (4)
  - Hypoaesthesia [Unknown]
  - Incorrect dose administered [Unknown]
  - Spinal fusion surgery [Unknown]
  - Device malfunction [Unknown]

NARRATIVE: CASE EVENT DATE: 20190114
